FAERS Safety Report 7764506-X (Version None)
Quarter: 2011Q3

REPORT INFORMATION
  Report Type: 
  Country: None (occurrence: None)
  Receive Date: 20110921
  Receipt Date: 20110914
  Transmission Date: 20111222
  Serious: Yes (Hospitalization)
  Sender: FDA-Public Use
  Company Number: FR-SANOFI-AVENTIS-2011SA059783

PATIENT
  Age: 47 Year
  Sex: Male

DRUGS (6)
  1. TAXOTERE [Suspect]
     Route: 042
     Dates: start: 20101126, end: 20101217
  2. TAXOTERE [Suspect]
     Route: 042
     Dates: start: 20110517, end: 20110517
  3. CISPLATIN [Suspect]
     Route: 042
     Dates: start: 20110101, end: 20110205
  4. CISPLATIN [Suspect]
     Route: 042
     Dates: start: 20101126, end: 20101217
  5. CISPLATIN [Suspect]
     Route: 042
     Dates: start: 20110517, end: 20110517
  6. TAXOTERE [Suspect]
     Route: 042
     Dates: start: 20110101, end: 20110205

REACTIONS (1)
  - RHEUMATOID ARTHRITIS [None]
